FAERS Safety Report 15134172 (Version 1)
Quarter: 2018Q3

REPORT INFORMATION
  Report Type: Spontaneous
  Country: JP (occurrence: JP)
  Receive Date: 20180712
  Receipt Date: 20180712
  Transmission Date: 20181010
  Serious: Yes (Other)
  Sender: FDA-Public Use
  Company Number: PHJP2018JP013781

PATIENT
  Age: 76 Year
  Sex: Female

DRUGS (1)
  1. NILOTINIB [Suspect]
     Active Substance: NILOTINIB
     Indication: CHRONIC MYELOID LEUKAEMIA
     Dosage: 800 MG, UNK
     Route: 048
     Dates: start: 201609

REACTIONS (5)
  - Chest discomfort [Unknown]
  - Electrocardiogram ST segment depression [Unknown]
  - Electrocardiogram Q wave abnormal [Unknown]
  - Laryngeal discomfort [Unknown]
  - Angina pectoris [Unknown]

NARRATIVE: CASE EVENT DATE: 201802
